FAERS Safety Report 4604662-5 (Version None)
Quarter: 2005Q1

REPORT INFORMATION
  Report Type: 
  Country: None (occurrence: None)
  Receive Date: 20050116
  Receipt Date: 20050113
  Transmission Date: 20050727
  Serious: No
  Sender: FDA-Public Use
  Company Number: PHEH2005US00920

PATIENT
  Sex: Male

DRUGS (1)
  1. GLEEVEC [Suspect]
     Indication: CHRONIC MYELOID LEUKAEMIA
     Dosage: 1600 MG, QD, ORAL
     Route: 048
     Dates: start: 20050109, end: 20050112

REACTIONS (2)
  - MEDICATION ERROR [None]
  - NO ADVERSE DRUG EFFECT [None]
